FAERS Safety Report 11854270 (Version 1)
Quarter: 2015Q4

REPORT INFORMATION
  Report Type: Report from Study
  Country: US (occurrence: US)
  Receive Date: 20151220
  Receipt Date: 20151220
  Transmission Date: 20160305
  Serious: Yes (Other)
  Sender: FDA-Public Use
  Company Number: US-AMGEN-USASL2015135637

PATIENT
  Age: 60 Year
  Sex: Female

DRUGS (2)
  1. ENBREL [Suspect]
     Active Substance: ETANERCEPT
     Indication: RHEUMATOID ARTHRITIS
     Dosage: UNK UNK, UNK
     Route: 065
     Dates: start: 2009, end: 201502
  2. ORENCIA [Concomitant]
     Active Substance: ABATACEPT
     Dosage: UNK
     Dates: start: 2015, end: 2015

REACTIONS (5)
  - Hip arthroplasty [Unknown]
  - Rotator cuff repair [Unknown]
  - Pain in extremity [Unknown]
  - Arthropathy [Unknown]
  - Arthralgia [Unknown]

NARRATIVE: CASE EVENT DATE: 2015
